FAERS Safety Report 13127699 (Version 6)
Quarter: 2020Q1

REPORT INFORMATION
  Report Type: Spontaneous
  Country: US (occurrence: US)
  Receive Date: 20170118
  Receipt Date: 20200318
  Transmission Date: 20200409
  Serious: No
  Sender: FDA-Public Use
  Company Number: US-PFIZER INC-2017022101

PATIENT
  Sex: Female

DRUGS (2)
  1. IMITREX [Concomitant]
     Active Substance: SUMATRIPTAN SUCCINATE
     Dosage: UNK
  2. CELEBREX [Suspect]
     Active Substance: CELECOXIB
     Dosage: 200 MG, UNK

REACTIONS (6)
  - Intentional product misuse [Unknown]
  - Disease recurrence [Unknown]
  - Product dose omission [Unknown]
  - Migraine [Unknown]
  - Malaise [Unknown]
  - Loss of personal independence in daily activities [Unknown]
